FAERS Safety Report 23689491 (Version 1)
Quarter: 2024Q1

REPORT INFORMATION
  Report Type: Spontaneous
  Country: US (occurrence: US)
  Receive Date: 20240331
  Receipt Date: 20240331
  Transmission Date: 20240410
  Serious: No
  Sender: FDA-Public Use
  Company Number: US-TEVA-VS-3160545

PATIENT
  Sex: Female

DRUGS (19)
  1. PENICILLIN [Suspect]
     Active Substance: PENICILLIN
  2. ACTEMRA [Concomitant]
     Active Substance: TOCILIZUMAB
  3. VENTOLIN HFA [Concomitant]
     Active Substance: ALBUTEROL SULFATE
  4. FOSAMAX [Concomitant]
     Active Substance: ALENDRONATE SODIUM
  5. NORVASC [Concomitant]
     Active Substance: AMLODIPINE BESYLATE
  6. BUMEX [Concomitant]
     Active Substance: BUMETANIDE
  7. COREG [Concomitant]
     Active Substance: CARVEDILOL
  8. ASPIRIN [Concomitant]
     Active Substance: ASPIRIN
  9. ZYRTEC [Concomitant]
     Active Substance: CETIRIZINE HYDROCHLORIDE
  10. FLEXERIL [Concomitant]
     Active Substance: CYCLOBENZAPRINE HYDROCHLORIDE
  11. FLONASE [Concomitant]
     Active Substance: FLUTICASONE PROPIONATE
  12. TRELEGY ELLIPTA [Concomitant]
     Active Substance: FLUTICASONE FUROATE\UMECLIDINIUM BROMIDE\VILANTEROL TRIFENATATE
  13. FOLVITE [Concomitant]
     Active Substance: FOLIC ACID
  14. PLAQUENIL [Concomitant]
     Active Substance: HYDROXYCHLOROQUINE SULFATE
  15. DUONEB [Concomitant]
     Active Substance: ALBUTEROL SULFATE\IPRATROPIUM BROMIDE
  16. Lido Derm [Concomitant]
  17. KLOR-CON [Concomitant]
     Active Substance: POTASSIUM CHLORIDE
  18. Doi van [Concomitant]
  19. Flitastones Multivitamin [Concomitant]

REACTIONS (2)
  - Vomiting [Unknown]
  - Nausea [Unknown]

NARRATIVE: CASE EVENT DATE: 20190324
